FAERS Safety Report 13312607 (Version 1)
Quarter: 2017Q1

REPORT INFORMATION
  Report Type: Spontaneous
  Country: US (occurrence: US)
  Receive Date: 20170309
  Receipt Date: 20170309
  Transmission Date: 20170428
  Serious: No
  Sender: FDA-Public Use
  Company Number: US-GLAXOSMITHKLINE-US2017030698

PATIENT
  Age: 58 Year
  Sex: Male

DRUGS (2)
  1. BENADRYL [Suspect]
     Active Substance: DIPHENHYDRAMINE HYDROCHLORIDE
     Indication: PRODUCT USED FOR UNKNOWN INDICATION
     Dosage: UNK
  2. ABREVA [Suspect]
     Active Substance: DOCOSANOL
     Indication: GLOSSODYNIA
     Dosage: UNK

REACTIONS (7)
  - Rash [Unknown]
  - Off label use [Unknown]
  - Dyspnoea [Unknown]
  - Erythema [Unknown]
  - Condition aggravated [Unknown]
  - Urticaria [Unknown]
  - Anxiety [Unknown]

NARRATIVE: CASE EVENT DATE: 20170303
